FAERS Safety Report 6373503-0 (Version None)
Quarter: 2009Q3

REPORT INFORMATION
  Report Type: 
  Country: None (occurrence: None)
  Receive Date: 20090924
  Receipt Date: 20090220
  Transmission Date: 20100115
  Serious: Yes (Other)
  Sender: FDA-Public Use
  Company Number: US-ASTRAZENECA-2009UW04950

PATIENT
  Age: 49 Year
  Sex: Female

DRUGS (3)
  1. SEROQUEL [Suspect]
     Dosage: 600MG
     Route: 048
  2. LAMICTAL [Concomitant]
  3. WELLBUTRIN [Concomitant]

REACTIONS (1)
  - HALLUCINATION [None]
